FAERS Safety Report 25388025 (Version 1)
Quarter: 2025Q2

REPORT INFORMATION
  Report Type: Spontaneous
  Country: GB (occurrence: GB)
  Receive Date: 20250603
  Receipt Date: 20250603
  Transmission Date: 20250716
  Serious: Yes (Other)
  Sender: TEVA
  Company Number: GB-002147023-NVSC2024GB191521

PATIENT
  Age: 27 Year
  Sex: Male

DRUGS (3)
  1. CYCLOSPORINE [Suspect]
     Active Substance: CYCLOSPORINE
     Indication: Product used for unknown indication
     Route: 065
  2. XOLAIR [Suspect]
     Active Substance: OMALIZUMAB
     Indication: Chronic spontaneous urticaria
     Route: 065
  3. DUPILUMAB [Suspect]
     Active Substance: DUPILUMAB
     Indication: Product used for unknown indication
     Route: 065

REACTIONS (3)
  - Angioedema [Unknown]
  - Therapeutic product effect incomplete [Unknown]
  - Urticaria [Unknown]
